FAERS Safety Report 7731419-9 (Version None)
Quarter: 2011Q3

REPORT INFORMATION
  Report Type: 
  Country: None (occurrence: None)
  Receive Date: 20110906
  Receipt Date: 20110601
  Transmission Date: 20111222
  Serious: No
  Sender: FDA-Public Use
  Company Number: US-AMGEN-USASP2011028382

PATIENT
  Sex: Female

DRUGS (3)
  1. PROLIA [Suspect]
     Indication: PRODUCT USED FOR UNKNOWN INDICATION
     Dosage: UNK UNK, Q6MO
     Dates: start: 20101201
  2. CALCIUM CARBONATE [Concomitant]
  3. VITAMIN D [Concomitant]
     Dosage: UNK

REACTIONS (4)
  - CONSTIPATION [None]
  - FATIGUE [None]
  - ANKLE FRACTURE [None]
  - FALL [None]
